FAERS Safety Report 4594089-7 (Version None)
Quarter: 2005Q1

REPORT INFORMATION
  Report Type: 
  Country: None (occurrence: None)
  Receive Date: 20050218
  Receipt Date: 20050214
  Transmission Date: 20050727
  Serious: Yes (Hospitalization, Other)
  Sender: FDA-Public Use
  Company Number: FRWYE420514FEB05

PATIENT
  Age: 81 Year
  Sex: Female

DRUGS (6)
  1. EFFEXOR [Suspect]
     Dosage: 2 DOSE 1X PER 1 DAY
     Route: 048
     Dates: end: 20040826
  2. DEPAKOTE [Concomitant]
  3. REMINYL [Concomitant]
  4. BISOPROLOL FUMARATE [Suspect]
     Dosage: 1 DOS 1X PER 1 DAY ORAL
     Route: 048
     Dates: end: 20040826
  5. RISPERDAL [Suspect]
     Dosage: 1 DOSE 1X PER 1 DAY
     Route: 048
     Dates: end: 20040826
  6. CITALOPRAM HYDROBROMIDE [Suspect]
     Dosage: 1 DOSE 1X PER 1 DAY
     Route: 048
     Dates: end: 20040826

REACTIONS (4)
  - DRUG INTERACTION [None]
  - FALL [None]
  - HYPOTENSION [None]
  - MALAISE [None]
